FAERS Safety Report 8404089-4 (Version None)
Quarter: 2012Q2

REPORT INFORMATION
  Report Type: 
  Country: None (occurrence: None)
  Receive Date: 20120601
  Receipt Date: 20120528
  Transmission Date: 20120825
  Serious: Yes (Other)
  Sender: FDA-Public Use
  Company Number: AR-ROCHE-1061985

PATIENT
  Sex: Female

DRUGS (3)
  1. XOLAIR [Suspect]
     Dosage: SECOND DOSE
     Dates: start: 20111201, end: 20120101
  2. DELTISONE [Concomitant]
  3. XOLAIR [Suspect]
     Indication: ASTHMA
     Dosage: QMO
     Dates: end: 20120101

REACTIONS (4)
  - NASOPHARYNGITIS [None]
  - SOMNOLENCE [None]
  - ASTHMA [None]
  - COUGH [None]
